FAERS Safety Report 5079658-2 (Version None)
Quarter: 2006Q3

REPORT INFORMATION
  Report Type: 
  Country: None (occurrence: None)
  Receive Date: 20060814
  Receipt Date: 20060706
  Transmission Date: 20061208
  Serious: Yes (Other)
  Sender: FDA-Public Use
  Company Number: IE-ABBOTT-06P-229-0337817-00

PATIENT
  Sex: Male

DRUGS (5)
  1. HUMIRA [Suspect]
     Indication: ANKYLOSING SPONDYLITIS
     Route: 065
     Dates: start: 20060315
  2. HUMIRA [Suspect]
     Indication: COLITIS ULCERATIVE
     Route: 065
     Dates: start: 20060727
  3. PREDNISOLONE [Concomitant]
     Indication: COLITIS ULCERATIVE
     Route: 048
  4. IMODIUM [Concomitant]
     Indication: COLITIS ULCERATIVE
     Route: 048
  5. ALENDRONATE SODIUM [Concomitant]
     Indication: PROPHYLAXIS
     Route: 048

REACTIONS (1)
  - POUCHITIS [None]
